APPROVED DRUG PRODUCT: TROSPIUM CHLORIDE
Active Ingredient: TROSPIUM CHLORIDE
Strength: 60MG
Dosage Form/Route: CAPSULE, EXTENDED RELEASE;ORAL
Application: A214760 | Product #001 | TE Code: AB
Applicant: UTOPIC PHARMACEUTICALS INC
Approved: Apr 30, 2021 | RLD: No | RS: No | Type: RX